FAERS Safety Report 9223226 (Version 1)
Quarter: 2013Q2

REPORT INFORMATION
  Report Type: Spontaneous
  Country: US (occurrence: None)
  Receive Date: 20130409
  Receipt Date: 20130409
  Transmission Date: 20140414
  Serious: Yes (Death)
  Sender: FDA-Public Use
  Company Number: None

PATIENT
  Age: 61 Year
  Sex: Male

DRUGS (1)
  1. MYCOPHENOLATE [Suspect]
     Indication: LUNG TRANSPLANT
     Dosage: 1000MG  Q12H  PO
     Route: 048
     Dates: start: 20120511, end: 20130302

REACTIONS (1)
  - Septic shock [None]
